FAERS Safety Report 8516581-2 (Version None)
Quarter: 2012Q3

REPORT INFORMATION
  Report Type: 
  Country: None (occurrence: None)
  Receive Date: 20120711
  Receipt Date: 20120711
  Transmission Date: 20120928
  Serious: Yes (Other)
  Sender: FDA-Public Use
  Company Number: None

PATIENT
  Age: 40 Year
  Sex: Female
  Weight: 104.3273 kg

DRUGS (1)
  1. NEXPLANON [Suspect]
     Indication: ENDOMETRIOSIS
     Dosage: IMPLANT SUBDERMAL
     Route: 059
     Dates: start: 20120510, end: 20120709

REACTIONS (5)
  - LOSS OF EMPLOYMENT [None]
  - INSOMNIA [None]
  - DIZZINESS [None]
  - DEPRESSION [None]
  - HEADACHE [None]
